FAERS Safety Report 20601607 (Version 1)
Quarter: 2022Q1

REPORT INFORMATION
  Report Type: Spontaneous
  Country: FR (occurrence: FR)
  Receive Date: 20220316
  Receipt Date: 20220316
  Transmission Date: 20220423
  Serious: Yes (Other)
  Sender: FDA-Public Use
  Company Number: None

PATIENT
  Age: 83 Year
  Sex: Female
  Weight: 98.5 kg

DRUGS (15)
  1. ATENOLOL [Suspect]
     Active Substance: ATENOLOL
     Indication: Atrial fibrillation
     Dosage: 25MG
     Route: 048
     Dates: start: 2014, end: 20220107
  2. COMIRNATY [Suspect]
     Active Substance: TOZINAMERAN
     Indication: COVID-19 immunisation
     Dosage: D2+R1,COMIRNATY, DISPERSION TO BE DILUTED FOR SOLUTION FOR INJECTION. MRNA VACCINE (MODIFIED NUCLEOS
     Route: 030
     Dates: start: 20210308, end: 20211002
  3. VITAMIN D3 [Concomitant]
     Active Substance: CHOLECALCIFEROL
     Indication: Vitamin supplementation
     Dosage: 880IU
     Route: 048
  4. CHOLECALCIFEROL [Concomitant]
     Active Substance: CHOLECALCIFEROL
     Indication: Vitamin supplementation
     Dosage: ZYMAD 80,000 IU, ORAL SOLUTION IN AMPOULE,UNIT DOSE :1DF
     Route: 048
  5. TRANDOLAPRIL [Concomitant]
     Active Substance: TRANDOLAPRIL
     Indication: Hypertension
     Dosage: ODRIK 4 MG, CAPSULE,UNIT DOSE:4MG
     Route: 048
  6. CORDARONE [Concomitant]
     Active Substance: AMIODARONE HYDROCHLORIDE
     Indication: Atrial fibrillation
     Dosage: 5 DAYS A WEEK,CORDARONE 200 MG, SCORED TABLET,UNIT DOSE:1DF
     Route: 048
  7. CALCIUM CARBONATE [Concomitant]
     Active Substance: CALCIUM CARBONATE
     Indication: Mineral supplementation
     Dosage: 1000MG
     Route: 048
  8. TAHOR [Concomitant]
     Active Substance: ATORVASTATIN CALCIUM
     Indication: Cardiovascular event prophylaxis
     Dosage: TAHOR 40 MG, FILM-COATED TABLETS,UNIT DOSE:40MG
     Route: 048
  9. FUROSEMIDE [Concomitant]
     Active Substance: FUROSEMIDE
     Indication: Hypertension
     Dosage: LASILIX 40 MG, SCORED TABLET,UNIT DOSE:80MG
     Route: 048
  10. KARDEGIC [Concomitant]
     Active Substance: ASPIRIN DL-LYSINE
     Indication: Cardiovascular event prophylaxis
     Dosage: KARDEGIC 75 MG, POWDER FOR ORAL SOLUTION IN SACHET-DOSE,UNIT DOSE:75MG
     Route: 048
  11. POTASSIUM CHLORIDE [Concomitant]
     Active Substance: POTASSIUM CHLORIDE
     Indication: Hypokalaemia
     Dosage: DIFFU K, CAPSULE,UNIT DOSE:4DF
     Route: 048
  12. ACETAMINOPHEN [Concomitant]
     Active Substance: ACETAMINOPHEN
     Indication: Pain
     Route: 048
  13. MYTELASE [Concomitant]
     Active Substance: AMBENONIUM CHLORIDE
     Indication: Muscular weakness
     Dosage: MYTELASE 10 MG, TABLET,UNIT DOSE:40MG
     Route: 048
  14. PREVISCAN [Concomitant]
     Indication: Atrial fibrillation
     Dosage: EVEN DAYS: 0.75 CP?ODD DAYS: 1 CP,PREVISCAN 20 MG, SCORED TABLET,UNIT DOSE:1DF
     Route: 048
  15. ESOMEPRAZOLE [Concomitant]
     Active Substance: ESOMEPRAZOLE
     Indication: Gastrooesophageal reflux prophylaxis
     Dosage: INEXIUM 20 MG, GASTRO-RESISTANT TABLET,UNIT DOSE :20MG
     Route: 048

REACTIONS (2)
  - Muscular weakness [Recovering/Resolving]
  - Disease recurrence [Recovering/Resolving]

NARRATIVE: CASE EVENT DATE: 20210323
